FAERS Safety Report 7006939-5 (Version None)
Quarter: 2010Q3

REPORT INFORMATION
  Report Type: 
  Country: None (occurrence: None)
  Receive Date: 20100922
  Receipt Date: 20100914
  Transmission Date: 20110219
  Serious: Yes (Hospitalization)
  Sender: FDA-Public Use
  Company Number: JP-JNJFOC-20100903166

PATIENT
  Age: 54 Year
  Sex: Male

DRUGS (4)
  1. CRAVIT [Suspect]
     Indication: PNEUMONIA
     Route: 048
  2. MAXIPIME [Suspect]
     Indication: PRODUCT USED FOR UNKNOWN INDICATION
     Route: 065
  3. LOXONIN [Concomitant]
     Route: 065
  4. NEUER [Concomitant]
     Route: 065

REACTIONS (1)
  - EOSINOPHILIC PNEUMONIA [None]
